FAERS Safety Report 7386903-7 (Version None)
Quarter: 2011Q1

REPORT INFORMATION
  Report Type: 
  Country: None (occurrence: None)
  Receive Date: 20110331
  Receipt Date: 20110321
  Transmission Date: 20110831
  Serious: Yes (Other)
  Sender: FDA-Public Use
  Company Number: US-JNJFOC-20110309400

PATIENT
  Sex: Female
  Weight: 53.52 kg

DRUGS (3)
  1. SIMPONI [Suspect]
     Indication: PRODUCT USED FOR UNKNOWN INDICATION
     Route: 058
  2. SIMPONI [Suspect]
     Route: 058
  3. ALEVE [Concomitant]
     Indication: PRODUCT USED FOR UNKNOWN INDICATION

REACTIONS (7)
  - JOINT STIFFNESS [None]
  - DEVICE MALFUNCTION [None]
  - HYPOAESTHESIA [None]
  - PALPITATIONS [None]
  - CHEST PAIN [None]
  - SENSATION OF FOREIGN BODY [None]
  - INCORRECT DOSE ADMINISTERED [None]
